FAERS Safety Report 5255882-0 (Version None)
Quarter: 2007Q1

REPORT INFORMATION
  Report Type: 
  Country: None (occurrence: None)
  Receive Date: 20070301
  Receipt Date: 20070216
  Transmission Date: 20070707
  Serious: Yes (Hospitalization)
  Sender: FDA-Public Use
  Company Number: 235530

PATIENT
  Age: 75 Year
  Sex: Male
  Weight: 89 kg

DRUGS (14)
  1. AVASTIN [Suspect]
     Indication: NON-SMALL CELL LUNG CANCER
     Dosage: 15 MG/KG, Q3W, INTRAVENOUS
     Route: 042
     Dates: start: 20070110, end: 20070110
  2. TAXOTERE [Suspect]
     Indication: NON-SMALL CELL LUNG CANCER
     Dosage: 70 MG/M2, Q3W, INTRAVENOUS
     Route: 042
     Dates: start: 20070110, end: 20070110
  3. OXALIPLATIN [Suspect]
     Indication: NON-SMALL CELL LUNG CANCER
     Dosage: 100 MG/M2, Q3W, INTRAVENOUS
     Route: 042
     Dates: start: 20070110, end: 20070110
  4. DILAUDID [Concomitant]
  5. NEUPOGEN [Concomitant]
  6. DURAGESIC-100 [Concomitant]
  7. TUSSINEX (UNK INGREDIENTS) (GENERIC COMPONENT(S) NOT KNOWN) [Concomitant]
  8. PHENERGAN (PROMETHAZINE HYDROCHLORIDE) [Concomitant]
  9. HYCODAN (HOMATROPINE METHYLBROMIDE, HYDROCODONE BITARTRATE) [Concomitant]
  10. ATIVAN [Concomitant]
  11. LEVAQUIN [Concomitant]
  12. DECADRON [Concomitant]
  13. SENOKOT [Concomitant]
  14. XANAX [Concomitant]

REACTIONS (12)
  - ASTHENIA [None]
  - AXILLARY VEIN THROMBOSIS [None]
  - COUGH [None]
  - DEEP VEIN THROMBOSIS [None]
  - DIARRHOEA [None]
  - INFECTION [None]
  - JUGULAR VEIN THROMBOSIS [None]
  - LUNG INFILTRATION [None]
  - OXYGEN SATURATION DECREASED [None]
  - PYREXIA [None]
  - RASH PUSTULAR [None]
  - SUBCLAVIAN VEIN THROMBOSIS [None]
